FAERS Safety Report 10009424 (Version 1)
Quarter: 2014Q1

REPORT INFORMATION
  Report Type: Spontaneous
  Country: US (occurrence: US)
  Receive Date: 20140313
  Receipt Date: 20140313
  Transmission Date: 20141002
  Serious: Yes (Other)
  Sender: FDA-Public Use
  Company Number: US-ASTRAZENECA-2014SE16245

PATIENT
  Age: 53 Year
  Sex: Male

DRUGS (2)
  1. CRESTOR [Suspect]
     Route: 048
     Dates: start: 20131012, end: 20131113
  2. CRESTOR [Suspect]
     Route: 048
     Dates: start: 20131213

REACTIONS (2)
  - Coronary artery disease [Unknown]
  - Drug dose omission [Unknown]
